FAERS Safety Report 4789704-9 (Version None)
Quarter: 2005Q4

REPORT INFORMATION
  Report Type: 
  Country: None (occurrence: None)
  Receive Date: 20051005
  Receipt Date: 20051005
  Transmission Date: 20060501
  Serious: Yes (Hospitalization)
  Sender: FDA-Public Use
  Company Number: None

PATIENT
  Age: 22 Year
  Sex: Male
  Weight: 68.2 kg

DRUGS (5)
  1. INSULIN (NON-ADHERENCE) [Suspect]
     Indication: DIABETES MELLITUS
     Dosage: SQ
     Route: 058
  2. MORPHINE [Concomitant]
  3. ENALAPRIL [Concomitant]
  4. FERROUS SULFATE TAB [Concomitant]
  5. LANSOPRAZOLE [Concomitant]

REACTIONS (5)
  - ABDOMINAL DISCOMFORT [None]
  - BLOOD GLUCOSE INCREASED [None]
  - GLYCOSYLATED HAEMOGLOBIN INCREASED [None]
  - NAUSEA [None]
  - VOMITING [None]
